FAERS Safety Report 22715788 (Version 7)
Quarter: 2025Q4

REPORT INFORMATION
  Report Type: Other
  Country: EU (occurrence: EU)
  Receive Date: 20230718
  Receipt Date: 20251024
  Transmission Date: 20260117
  Serious: Yes (Other)
  Sender: BIOCON
  Company Number: EU-MYLANLABS-2023M1064049

PATIENT

DRUGS (19)
  1. TRASTUZUMAB [Suspect]
     Active Substance: TRASTUZUMAB
     Indication: HER2 positive breast cancer
     Dosage: AS PACLITAXEL + TRASTUZUMAB ( POWDER FOR CONCENTRATE FOR SOLUTION FOR INFUSION)
     Route: 065
     Dates: start: 2016
  2. TRASTUZUMAB [Suspect]
     Active Substance: TRASTUZUMAB
     Indication: Neoplasm
     Dosage: UNK, CYCLIC (5 CYCLES)/AS PERTUZUMAB + TRASTUZUMAB + DOCETAXEL (POWDER FOR CONCENTRATE FOR SOLUTION
     Route: 065
     Dates: start: 202106
  3. TRASTUZUMAB [Suspect]
     Active Substance: TRASTUZUMAB
     Indication: Breast cancer
     Dosage: AS TUCATINIB + CAPECITABIN + TRASTUZUMAB ( POWDER FOR CONCENTRATE FOR SOLUTION FOR INFUSION)
     Route: 065
     Dates: start: 202302
  4. TRASTUZUMAB [Suspect]
     Active Substance: TRASTUZUMAB
     Indication: Breast cancer stage III
  5. DOXORUBICIN [Suspect]
     Active Substance: DOXORUBICIN
     Indication: Neoplasm
     Dosage: UNK
     Route: 065
  6. PERTUZUMAB [Suspect]
     Active Substance: PERTUZUMAB
     Indication: HER2 positive breast cancer
     Dosage: 1 CYCLIC (5 CYCLES)/AS PERTUZUMAB + TRASTUZUMAB + DOCETAXEL, QCY ADMINISTERED 5 SERIES
     Route: 065
     Dates: start: 202106
  7. PERTUZUMAB [Suspect]
     Active Substance: PERTUZUMAB
     Indication: Neoplasm
  8. PERTUZUMAB [Suspect]
     Active Substance: PERTUZUMAB
     Indication: Breast cancer
  9. PERTUZUMAB [Suspect]
     Active Substance: PERTUZUMAB
     Indication: Breast cancer stage III
  10. DOCETAXEL [Suspect]
     Active Substance: DOCETAXEL
     Indication: HER2 positive breast cancer
     Dosage: 1 CYCLIC (5 CYCLES)/AS PERTUZUMAB + TRASTUZUMAB + DOCETAXEL, QCY ADMINISTERED 5 SERIES
     Route: 065
     Dates: start: 202106
  11. DOCETAXEL [Suspect]
     Active Substance: DOCETAXEL
     Indication: Neoplasm
  12. DOCETAXEL [Suspect]
     Active Substance: DOCETAXEL
     Indication: Breast cancer
  13. DOCETAXEL [Suspect]
     Active Substance: DOCETAXEL
     Indication: Breast cancer stage III
  14. CYCLOPHOSPHAMIDE [Suspect]
     Active Substance: CYCLOPHOSPHAMIDE
     Indication: Neoplasm
     Dosage: UNK
     Route: 065
  15. PACLITAXEL [Suspect]
     Active Substance: PACLITAXEL
     Indication: Breast cancer stage III
     Dosage: UNK
     Route: 065
  16. PACLITAXEL [Suspect]
     Active Substance: PACLITAXEL
     Indication: Neoplasm
  17. TUCATINIB [Concomitant]
     Active Substance: TUCATINIB
     Indication: HER2 positive breast cancer
     Dosage: TUCATINIB + CAPECITABIN + TRASTUZUMAB
     Route: 065
     Dates: start: 202302
  18. CAPECITABINE [Concomitant]
     Active Substance: CAPECITABINE
     Indication: HER2 positive breast cancer
     Dosage: TUCATINIB + CAPECITABIN + TRASTUZUMAB
     Route: 065
  19. PACLITAXEL [Concomitant]
     Active Substance: PACLITAXEL
     Indication: Breast cancer stage III
     Dosage: UNK
     Route: 065

REACTIONS (9)
  - Disease recurrence [Unknown]
  - Drug intolerance [Unknown]
  - Paronychia [Unknown]
  - Stomatitis [Recovered/Resolved]
  - Gait inability [Recovered/Resolved]
  - Dizziness [Recovered/Resolved]
  - Asthenia [Recovered/Resolved]
  - Stomatitis [Unknown]
  - Product use issue [Unknown]

NARRATIVE: CASE EVENT DATE: 20230101
